FAERS Safety Report 10643641 (Version 1)
Quarter: 2014Q4

REPORT INFORMATION
  Report Type: Spontaneous
  Country: US (occurrence: US)
  Receive Date: 20141210
  Receipt Date: 20141210
  Transmission Date: 20150529
  Serious: No
  Sender: FDA-Public Use
  Company Number: US-ENDO PHARMACEUTICALS INC.-AVEE20140330

PATIENT
  Age: 63 Year
  Sex: Male

DRUGS (3)
  1. AVEED [Suspect]
     Active Substance: TESTOSTERONE UNDECANOATE
     Dosage: UNKNOWN
     Route: 030
     Dates: start: 201410
  2. STEROID INJECTION [Concomitant]
     Active Substance: UNSPECIFIED INGREDIENT
     Indication: BACK PAIN
     Dosage: UNKNOWN
     Route: 065
     Dates: start: 2012
  3. AVEED [Suspect]
     Active Substance: TESTOSTERONE UNDECANOATE
     Indication: PRODUCT USED FOR UNKNOWN INDICATION
     Route: 030
     Dates: start: 201409, end: 201409

REACTIONS (1)
  - Injection site pain [Recovered/Resolved]

NARRATIVE: CASE EVENT DATE: 201409
